FAERS Safety Report 4691133-3 (Version None)
Quarter: 2005Q2

REPORT INFORMATION
  Report Type: 
  Country: None (occurrence: None)
  Receive Date: 20050610
  Receipt Date: 20050601
  Transmission Date: 20051028
  Serious: Yes (Hospitalization)
  Sender: FDA-Public Use
  Company Number: ST-2005-008380

PATIENT
  Age: 67 Year
  Sex: Male
  Weight: 52.7 kg

DRUGS (10)
  1. OLMETEC [Suspect]
     Indication: HYPERTENSION
     Dosage: 10 MG QD PO
     Route: 048
     Dates: start: 20050512, end: 20050512
  2. ARTIST [Concomitant]
  3. LANIRAPID [Concomitant]
  4. ALDACTONE [Concomitant]
  5. LASIX [Concomitant]
  6. FLUITRAN [Concomitant]
  7. ZYLORIC ^GLAXO WELLCOME^ [Concomitant]
  8. MARZULENE S [Concomitant]
  9. ACARDI [Concomitant]
  10. MYSLEE [Concomitant]

REACTIONS (3)
  - BLOOD PRESSURE DECREASED [None]
  - RENAL FAILURE ACUTE [None]
  - RENAL VESSEL DISORDER [None]
